FAERS Safety Report 10616704 (Version 1)
Quarter: 2014Q4

REPORT INFORMATION
  Report Type: Spontaneous
  Country: DE (occurrence: DE)
  Receive Date: 20141201
  Receipt Date: 20141201
  Transmission Date: 20150529
  Serious: Yes (Other)
  Sender: FDA-Public Use
  Company Number: DE-WATSON-2014-25460

PATIENT
  Age: 1 Day
  Sex: Female
  Weight: 2.78 kg

DRUGS (13)
  1. FOLSAN [Concomitant]
     Active Substance: FOLIC ACID
     Indication: PROPHYLAXIS OF NEURAL TUBE DEFECT
     Dosage: 5.0 MG, DAILY
     Route: 064
     Dates: start: 20131118, end: 20140815
  2. FSME-IMMUN [Concomitant]
     Indication: IMMUNISATION
     Dosage: 3RD VACCINE SHOT
     Route: 064
     Dates: start: 20140414, end: 20140414
  3. ENGERIX B [Concomitant]
     Indication: IMMUNISATION
     Dosage: UNK
     Route: 064
     Dates: start: 20131127, end: 20131127
  4. SUMATRIPTAN. [Concomitant]
     Active Substance: SUMATRIPTAN
     Indication: MIGRAINE
     Dosage: UNK, PRN
     Route: 064
  5. LEVOTHYROXINE SODIUM. [Concomitant]
     Active Substance: LEVOTHYROXINE SODIUM
     Indication: HYPOTHYROIDISM
     Dosage: 250 ?G, DAILY
     Route: 064
     Dates: start: 20131111, end: 20140815
  6. FRAXIPARIN                         /01437702/ [Concomitant]
     Indication: PROPHYLAXIS OF ABORTION
     Dosage: 2850 I.E/D
     Route: 064
     Dates: start: 20131201, end: 20140812
  7. CALCIUM [Concomitant]
     Active Substance: CALCIUM
     Indication: CALCIUM DEFICIENCY
     Dosage: 1000 MG, DAILY
     Route: 064
     Dates: start: 20131118, end: 20140815
  8. DEKRISTOL [Concomitant]
     Active Substance: CHOLECALCIFEROL
     Indication: VITAMIN D DEFICIENCY
     Dosage: 20000 I.E/WK
     Route: 064
     Dates: start: 20131118, end: 20140815
  9. PROGESTERON [Concomitant]
     Indication: PROPHYLAXIS OF ABORTION
     Dosage: 200 MG, DAILY
     Route: 064
     Dates: start: 20131118, end: 20140815
  10. ACETYLSALICYLIC ACID [Concomitant]
     Active Substance: ASPIRIN
     Indication: PROPHYLAXIS OF ABORTION
     Dosage: 100 MG, DAILY
     Route: 064
     Dates: start: 20131111, end: 20140815
  11. LAMOTRIGINE (UNKNOWN) [Suspect]
     Active Substance: LAMOTRIGINE
     Indication: EPILEPSY
     Dosage: 175 MG, DAILY
     Route: 064
     Dates: start: 20131111, end: 20140815
  12. LAMOTRIGINE (UNKNOWN) [Suspect]
     Active Substance: LAMOTRIGINE
     Dosage: 150 MG, DAILY
     Route: 064
  13. CITALOPRAM [Suspect]
     Active Substance: CITALOPRAM HYDROBROMIDE
     Indication: DEPRESSION
     Dosage: 30 MG/D
     Route: 064
     Dates: start: 20131118, end: 20140815

REACTIONS (3)
  - Agitation neonatal [Recovered/Resolved]
  - Foetal exposure during pregnancy [Recovered/Resolved]
  - Respiratory disorder neonatal [Recovered/Resolved]

NARRATIVE: CASE EVENT DATE: 20140815
